FAERS Safety Report 7928500-8 (Version None)
Quarter: 2011Q4

REPORT INFORMATION
  Report Type: 
  Country: None (occurrence: None)
  Receive Date: 20111118
  Receipt Date: 20111107
  Transmission Date: 20120403
  Serious: Yes (Other)
  Sender: FDA-Public Use
  Company Number: US-ELI_LILLY_AND_COMPANY-US201111002679

PATIENT
  Sex: Female
  Weight: 72.562 kg

DRUGS (11)
  1. PAXIL [Concomitant]
     Indication: DEPRESSION
  2. ZOLOFT [Concomitant]
     Indication: DEPRESSION
  3. PAMELOR [Concomitant]
     Indication: DEPRESSION
  4. REMERON [Concomitant]
     Indication: DEPRESSION
  5. CYMBALTA [Suspect]
     Indication: DEPRESSION
  6. AMBIEN [Concomitant]
     Indication: SLEEP DISORDER THERAPY
     Dosage: 10 MG, QD
  7. PRISTIQ [Concomitant]
     Indication: DEPRESSION
  8. ABILIFY [Concomitant]
     Indication: DEPRESSION
  9. PROZAC [Suspect]
     Indication: DEPRESSION
  10. NARDIL [Concomitant]
     Indication: DEPRESSION
     Dosage: 30 MG, BID
     Dates: start: 20101228
  11. WELLBUTRIN [Concomitant]
     Indication: DEPRESSION

REACTIONS (3)
  - THROMBOSIS [None]
  - OEDEMA PERIPHERAL [None]
  - DRUG INEFFECTIVE [None]
